FAERS Safety Report 18869385 (Version 1)
Quarter: 2021Q1

REPORT INFORMATION
  Report Type: Spontaneous
  Country: IT (occurrence: IT)
  Receive Date: 20210209
  Receipt Date: 20210209
  Transmission Date: 20210420
  Serious: Yes (Hospitalization, Other)
  Sender: FDA-Public Use
  Company Number: NVSC2021IT010990

PATIENT
  Age: 56 Year
  Sex: Female

DRUGS (3)
  1. CEFIDEROCOL. [Concomitant]
     Active Substance: CEFIDEROCOL
     Indication: ACINETOBACTER INFECTION
     Dosage: 6 G, QD, 2 GRAM, TID THREE TIMES A DAY FOR 21 DAYS
     Route: 065
  2. TIGECYCLINE. [Suspect]
     Active Substance: TIGECYCLINE
     Indication: ACINETOBACTER INFECTION
     Dosage: UNK, MIC = 2 MG/ML
     Route: 065
  3. COLISTIMETHATE SODIUM. [Suspect]
     Active Substance: COLISTIMETHATE SODIUM
     Indication: ACINETOBACTER INFECTION
     Dosage: 0.5 MG/ML
     Route: 065

REACTIONS (3)
  - Drug ineffective [Unknown]
  - Acute kidney injury [Unknown]
  - Coagulopathy [Unknown]
